FAERS Safety Report 19816128 (Version 7)
Quarter: 2022Q1

REPORT INFORMATION
  Report Type: Report from Study
  Country: US (occurrence: US)
  Receive Date: 20210910
  Receipt Date: 20220129
  Transmission Date: 20220423
  Serious: No
  Sender: FDA-Public Use
  Company Number: US-NOVARTISTESTPH-NVSC2021US205429

PATIENT
  Age: 68 Year
  Sex: Male

DRUGS (3)
  1. COSENTYX [Suspect]
     Active Substance: SECUKINUMAB
     Indication: Psoriasis
     Dosage: 300 MG/KG, QMO (SUBCUTANEOUS - BENEATH THE SKIN)
     Route: 058
     Dates: start: 20210406, end: 20210908
  2. COSENTYX [Suspect]
     Active Substance: SECUKINUMAB
     Dosage: 300 MG, QMO
     Route: 058
     Dates: start: 20210406, end: 20211115
  3. COSENTYX [Suspect]
     Active Substance: SECUKINUMAB
     Dosage: 300 MG/KG, QMO
     Route: 058
     Dates: start: 20210404, end: 20211207

REACTIONS (6)
  - Pruritus [Unknown]
  - Condition aggravated [Unknown]
  - Stress [Unknown]
  - Skin plaque [Recovered/Resolved]
  - Skin plaque [Recovered/Resolved]
  - Skin papilloma [Unknown]

NARRATIVE: CASE EVENT DATE: 20210829
